FAERS Safety Report 24182667 (Version 1)
Quarter: 2024Q3

REPORT INFORMATION
  Report Type: Spontaneous
  Country: JP (occurrence: JP)
  Receive Date: 20240807
  Receipt Date: 20240807
  Transmission Date: 20241016
  Serious: Yes (Death, Hospitalization)
  Sender: STRIDES
  Company Number: JP-STRIDES ARCOLAB LIMITED-2024SP009792

PATIENT
  Age: 52 Year
  Sex: Male

DRUGS (4)
  1. PREDNISOLONE [Suspect]
     Active Substance: PREDNISOLONE
     Indication: Peripheral T-cell lymphoma unspecified
     Dosage: UNK, CYCLICAL (RECEIVED ONE CYCLE; PART OF CHOP REGIMEN)
     Route: 065
  2. DOXORUBICIN [Suspect]
     Active Substance: DOXORUBICIN
     Indication: Peripheral T-cell lymphoma unspecified
     Dosage: UNK, CYCLICAL (RECEIVED ONE CYCLE; PART OF CHOP REGIMEN)
     Route: 065
  3. CYCLOPHOSPHAMIDE [Suspect]
     Active Substance: CYCLOPHOSPHAMIDE
     Indication: Peripheral T-cell lymphoma unspecified
     Dosage: UNK, CYCLICAL (RECEIVED ONE CYCLE; PART OF CHOP REGIMEN)
     Route: 065
  4. VINCRISTINE [Suspect]
     Active Substance: VINCRISTINE
     Indication: Peripheral T-cell lymphoma unspecified
     Dosage: UNK, CYCLICAL (RECEIVED ONE CYCLE; PART OF CHOP REGIMEN)
     Route: 065

REACTIONS (9)
  - Multiple organ dysfunction syndrome [Fatal]
  - Angiocentric lymphoma [Fatal]
  - Pancreatitis acute [Fatal]
  - Circulatory collapse [Fatal]
  - Interstitial lung disease [Recovered/Resolved]
  - Sepsis [Fatal]
  - Epstein-Barr virus infection reactivation [Fatal]
  - Fungal peritonitis [Fatal]
  - Candida infection [Fatal]
